FAERS Safety Report 20783511 (Version 8)
Quarter: 2022Q4

REPORT INFORMATION
  Report Type: Report from Study
  Country: US (occurrence: US)
  Receive Date: 20220504
  Receipt Date: 20221008
  Transmission Date: 20230113
  Serious: Yes (Other)
  Sender: FDA-Public Use
  Company Number: US-NOVARTISTESTPH-NVSC2022US102099

PATIENT
  Age: 85 Year
  Sex: Female

DRUGS (1)
  1. ENTRESTO [Suspect]
     Active Substance: SACUBITRIL\VALSARTAN
     Indication: Cardiac failure
     Dosage: 1 DOSAGE FORM, BID (24/26 MG)
     Route: 048
     Dates: start: 202201

REACTIONS (18)
  - Skin cancer [Unknown]
  - Macular degeneration [Unknown]
  - Hypoacusis [Unknown]
  - Corneal oedema [Unknown]
  - Visual impairment [Unknown]
  - Muscle spasms [Unknown]
  - Dysphonia [Unknown]
  - Middle insomnia [Unknown]
  - Joint swelling [Unknown]
  - Gait disturbance [Unknown]
  - Condition aggravated [Unknown]
  - Pain in extremity [Unknown]
  - Arthralgia [Not Recovered/Not Resolved]
  - Fall [Unknown]
  - Oropharyngeal pain [Recovering/Resolving]
  - Rhinorrhoea [Recovering/Resolving]
  - Fatigue [Recovering/Resolving]
  - Cough [Unknown]

NARRATIVE: CASE EVENT DATE: 20220101
